FAERS Safety Report 11767543 (Version 1)
Quarter: 2015Q4

REPORT INFORMATION
  Report Type: Spontaneous
  Country: US (occurrence: None)
  Receive Date: 20151120
  Receipt Date: 20151120
  Transmission Date: 20160304
  Serious: Yes (Hospitalization)
  Sender: FDA-Public Use
  Company Number: None

PATIENT
  Age: 33 Year
  Sex: Female
  Weight: 86 kg

DRUGS (3)
  1. INVOKANA [Suspect]
     Active Substance: CANAGLIFLOZIN
  2. LANTUS [Concomitant]
     Active Substance: INSULIN GLARGINE
  3. APRIDRA [Concomitant]

REACTIONS (4)
  - Nausea [None]
  - Abdominal pain [None]
  - Diabetic ketoacidosis [None]
  - Vomiting [None]

NARRATIVE: CASE EVENT DATE: 20151117
